FAERS Safety Report 8358641 (Version 2)
Quarter: 2012Q4

REPORT INFORMATION
  Report Type: 
  Country: FR (occurrence: FR)
  Receive Date: 20120127
  Receipt Date: 20121106
  Transmission Date: 20130627
  Serious: No
  Sender: FDA-Public Use
  Company Number: FR-UCBSA-050038

PATIENT
  Age: 54 Year
  Sex: Male

DRUGS (4)
  1. CIMZIA [Suspect]
     Indication: RHEUMATOID ARTHRITIS
     Route: 058
     Dates: start: 201107, end: 201201
  2. COAPROVEL [Concomitant]
     Indication: HYPERTENSION
     Dosage: 300MG/25MG
     Route: 048
  3. HYPERIUM [Concomitant]
     Indication: HYPERTENSION
     Route: 048
  4. KARDEGIC [Concomitant]
     Dosage: DAILY DOSE : 75 MG
     Route: 048

REACTIONS (1)
  - Musculoskeletal chest pain [Recovered/Resolved]
